FAERS Safety Report 17189237 (Version 1)
Quarter: 2019Q4

REPORT INFORMATION
  Report Type: Spontaneous
  Country: US (occurrence: US)
  Receive Date: 20191223
  Receipt Date: 20191223
  Transmission Date: 20200122
  Serious: No
  Sender: FDA-Public Use
  Company Number: US-JNJFOC-20191217946

PATIENT
  Age: 72 Year
  Sex: Male

DRUGS (1)
  1. ZYRTEC [Suspect]
     Active Substance: CETIRIZINE HYDROCHLORIDE
     Indication: MIDDLE EAR EFFUSION
     Dosage: LAST DOSE ADMIN: 05/DEC/2019
     Route: 048
     Dates: start: 20191205

REACTIONS (6)
  - Insomnia [Recovered/Resolved]
  - Product lot number issue [Unknown]
  - Dizziness [Recovered/Resolved]
  - Product expiration date issue [Unknown]
  - Off label use [Unknown]
  - Product use in unapproved indication [Unknown]

NARRATIVE: CASE EVENT DATE: 201912
